FAERS Safety Report 11426767 (Version 1)
Quarter: 2015Q3

REPORT INFORMATION
  Report Type: Spontaneous
  Country: US (occurrence: US)
  Receive Date: 20150821
  Receipt Date: 20150821
  Transmission Date: 20151125
  Serious: Yes (Hospitalization)
  Sender: FDA-Public Use
  Company Number: US-ELI_LILLY_AND_COMPANY-US201007006314

PATIENT
  Age: 64 Year
  Sex: Female

DRUGS (10)
  1. HUMULIN N [Suspect]
     Active Substance: INSULIN HUMAN
  2. TYLENOL [Concomitant]
     Active Substance: ACETAMINOPHEN
  3. MULTIVITAMINS [Concomitant]
     Active Substance: VITAMINS
  4. RISPERDAL [Concomitant]
     Active Substance: RISPERIDONE
  5. SYNTHROID [Concomitant]
     Active Substance: LEVOTHYROXINE SODIUM
  6. LISINOPRIL. [Concomitant]
     Active Substance: LISINOPRIL
  7. CELECOXIB. [Concomitant]
     Active Substance: CELECOXIB
     Indication: OSTEOARTHRITIS
     Dosage: 400 MG, DAILY (1/D)
     Route: 048
     Dates: start: 20090625, end: 20090730
  8. NEXIUM [Concomitant]
     Active Substance: ESOMEPRAZOLE MAGNESIUM
     Dates: start: 20090609
  9. LEVAMIN [Concomitant]
     Dates: start: 20090609
  10. SERTRALINE [Concomitant]
     Active Substance: SERTRALINE HYDROCHLORIDE

REACTIONS (8)
  - Blood creatine phosphokinase MB increased [Unknown]
  - Diabetic ketoacidotic hyperglycaemic coma [Recovered/Resolved]
  - Glycosylated haemoglobin increased [Unknown]
  - Blood urea increased [Unknown]
  - Blood triglycerides increased [Unknown]
  - Blood cholesterol increased [Unknown]
  - High density lipoprotein decreased [Unknown]
  - Blood creatine phosphokinase increased [Unknown]

NARRATIVE: CASE EVENT DATE: 20090729
